FAERS Safety Report 7778047-7 (Version None)
Quarter: 2011Q3

REPORT INFORMATION
  Report Type: 
  Country: None (occurrence: None)
  Receive Date: 20110922
  Receipt Date: 20110915
  Transmission Date: 20111222
  Serious: No
  Sender: FDA-Public Use
  Company Number: 201111206

PATIENT
  Sex: Male

DRUGS (1)
  1. LIORESAL [Suspect]
     Indication: MUSCLE SPASTICITY
     Dosage: 500 MCG, DAILY, INTRATHECAL

REACTIONS (5)
  - MUSCLE SPASTICITY [None]
  - PALLOR [None]
  - MALAISE [None]
  - LIQUID PRODUCT PHYSICAL ISSUE [None]
  - DECUBITUS ULCER [None]
